FAERS Safety Report 15410245 (Version 1)
Quarter: 2018Q3

REPORT INFORMATION
  Report Type: Spontaneous
  Country: NL (occurrence: NL)
  Receive Date: 20180921
  Receipt Date: 20180921
  Transmission Date: 20181010
  Serious: Yes (Other)
  Sender: FDA-Public Use
  Company Number: NL-TEVA-2018-NL-956873

PATIENT
  Age: 73 Year
  Sex: Male

DRUGS (18)
  1. DOXORUBICIN [Suspect]
     Active Substance: DOXORUBICIN
     Indication: TESTICULAR NEOPLASM
     Dosage: UNK
     Route: 065
  2. CELLCEPT [Suspect]
     Active Substance: MYCOPHENOLATE MOFETIL\MYCOPHENOLATE MOFETIL HYDROCHLORIDE
     Indication: PRODUCT USED FOR UNKNOWN INDICATION
     Dosage: UNK
     Route: 065
     Dates: start: 201611, end: 201803
  3. METHOTREXATE. [Suspect]
     Active Substance: METHOTREXATE
     Indication: SCLERODERMA
     Route: 037
  4. CISPLATIN. [Suspect]
     Active Substance: CISPLATIN
     Indication: DIFFUSE LARGE B-CELL LYMPHOMA RECURRENT
     Dosage: UNK
     Route: 065
  5. RITUXIMAB. [Suspect]
     Active Substance: RITUXIMAB
     Indication: DIFFUSE LARGE B-CELL LYMPHOMA RECURRENT
     Route: 065
  6. PREDNISOLONE. [Suspect]
     Active Substance: PREDNISOLONE
     Indication: TESTICULAR NEOPLASM
     Route: 065
     Dates: start: 201609
  7. DEXAMETHASONE. [Suspect]
     Active Substance: DEXAMETHASONE
     Indication: DIFFUSE LARGE B-CELL LYMPHOMA RECURRENT
     Route: 065
  8. CYCLOPHOSPHAMIDE. [Suspect]
     Active Substance: CYCLOPHOSPHAMIDE
     Indication: DIFFUSE LARGE B-CELL LYMPHOMA
     Route: 065
  9. CYCLOPHOSPHAMIDE. [Suspect]
     Active Substance: CYCLOPHOSPHAMIDE
     Indication: TESTICULAR NEOPLASM
     Dosage: UNK
     Route: 065
  10. METHOTREXATE. [Suspect]
     Active Substance: METHOTREXATE
     Indication: DIFFUSE LARGE B-CELL LYMPHOMA
     Route: 065
     Dates: start: 201803
  11. PREDNISOLONE. [Suspect]
     Active Substance: PREDNISOLONE
     Indication: DIFFUSE LARGE B-CELL LYMPHOMA
     Route: 065
     Dates: start: 201608
  12. METHOTREXATE. [Suspect]
     Active Substance: METHOTREXATE
     Indication: TESTICULAR NEOPLASM
  13. VINCRISTINE [Suspect]
     Active Substance: VINCRISTINE
     Indication: TESTICULAR NEOPLASM
     Route: 065
  14. VINCRISTINE [Suspect]
     Active Substance: VINCRISTINE
     Indication: DIFFUSE LARGE B-CELL LYMPHOMA
  15. DOXORUBICIN [Suspect]
     Active Substance: DOXORUBICIN
     Indication: DIFFUSE LARGE B-CELL LYMPHOMA
  16. NIVOLUMAB [Suspect]
     Active Substance: NIVOLUMAB
     Indication: SKIN LESION
     Route: 042
     Dates: start: 201503
  17. RITUXIMAB. [Suspect]
     Active Substance: RITUXIMAB
     Indication: TESTICULAR NEOPLASM
  18. CYTARABINE. [Suspect]
     Active Substance: CYTARABINE
     Indication: DIFFUSE LARGE B-CELL LYMPHOMA RECURRENT
     Dosage: UNK
     Route: 065

REACTIONS (12)
  - Diffuse large B-cell lymphoma recurrent [Recovered/Resolved]
  - Product use in unapproved indication [Unknown]
  - Disease recurrence [Not Recovered/Not Resolved]
  - Pain [Unknown]
  - Skin lesion [Recovered/Resolved]
  - Malignant neoplasm progression [Recovered/Resolved]
  - Musculoskeletal disorder [Unknown]
  - Scleroderma [Unknown]
  - Morphoea [Not Recovered/Not Resolved]
  - Drug ineffective [Unknown]
  - Total lung capacity decreased [Unknown]
  - Off label use [Unknown]

NARRATIVE: CASE EVENT DATE: 201408
